FAERS Safety Report 12364182 (Version 1)
Quarter: 2016Q2

REPORT INFORMATION
  Report Type: Spontaneous
  Country: US (occurrence: None)
  Receive Date: 20160512
  Receipt Date: 20160512
  Transmission Date: 20160815
  Serious: Yes (Other)
  Sender: FDA-Public Use
  Company Number: None

PATIENT
  Age: 60 Year
  Sex: Female

DRUGS (3)
  1. DAKLINZA [Concomitant]
     Active Substance: DACLATASVIR
  2. RIBAVIRIN. [Concomitant]
     Active Substance: RIBAVIRIN
  3. SOVALDI [Suspect]
     Active Substance: SOFOSBUVIR
     Indication: CHRONIC HEPATITIS C

REACTIONS (5)
  - Ascites [None]
  - Diarrhoea [None]
  - Gastroenteritis viral [None]
  - Oedema [None]
  - Abdominal distension [None]

NARRATIVE: CASE EVENT DATE: 20160511
